FAERS Safety Report 11193606 (Version 1)
Quarter: 2015Q2

REPORT INFORMATION
  Report Type: Spontaneous
  Country: IT (occurrence: IT)
  Receive Date: 20150616
  Receipt Date: 20150616
  Transmission Date: 20150821
  Serious: Yes (Hospitalization, Other)
  Sender: FDA-Public Use
  Company Number: PHHY2015IT068441

PATIENT
  Age: 17 Year
  Sex: Female
  Weight: 65 kg

DRUGS (2)
  1. ETHINYLESTRADIOL, GESTODENE [Suspect]
     Active Substance: ETHINYL ESTRADIOL\GESTODENE
     Indication: PRODUCT USED FOR UNKNOWN INDICATION
     Route: 065
  2. ATORVASTATIN [Concomitant]
     Active Substance: ATORVASTATIN
     Indication: HYPERCHOLESTEROLAEMIA
     Dosage: 10 MG, QD
     Route: 065

REACTIONS (8)
  - Chest pain [Recovered/Resolved]
  - Coronary artery disease [Recovered/Resolved]
  - Arteriosclerosis [Recovered/Resolved]
  - Angina pectoris [Recovered/Resolved]
  - Hypercoagulation [Recovered/Resolved]
  - Electrocardiogram ST segment depression [Recovered/Resolved]
  - Aortic valve stenosis [Recovered/Resolved]
  - Myocardial infarction [Recovered/Resolved]
